FAERS Safety Report 5386669-6 (Version None)
Quarter: 2007Q3

REPORT INFORMATION
  Report Type: 
  Country: None (occurrence: None)
  Receive Date: 20070713
  Receipt Date: 20070704
  Transmission Date: 20080115
  Serious: Yes (Other)
  Sender: FDA-Public Use
  Company Number: BR-ABBOTT-07P-020-0373632-00

PATIENT
  Age: 7 Year
  Sex: Female
  Weight: 33 kg

DRUGS (3)
  1. DEPAKOTE [Suspect]
     Indication: BRAIN NEOPLASM
     Route: 048
     Dates: start: 20020101
  2. PHENOBARBITAL TAB [Concomitant]
     Indication: BRAIN NEOPLASM
     Route: 048
  3. CARBAMAZEPINE [Concomitant]
     Indication: BRAIN NEOPLASM
     Route: 048

REACTIONS (1)
  - CONVULSION [None]
